FAERS Safety Report 14502193 (Version 2)
Quarter: 2020Q1

REPORT INFORMATION
  Report Type: Spontaneous
  Country: US (occurrence: US)
  Receive Date: 20180208
  Receipt Date: 20200324
  Transmission Date: 20200409
  Serious: No
  Sender: FDA-Public Use
  Company Number: US-BRISTOL-MYERS SQUIBB COMPANY-BMS-2018-010188

PATIENT
  Sex: Male

DRUGS (1)
  1. SPRYCEL [Suspect]
     Active Substance: DASATINIB
     Indication: PRODUCT USED FOR UNKNOWN INDICATION
     Dosage: 100 MILLIGRAM, QD
     Route: 048

REACTIONS (7)
  - Gastroenteritis viral [Recovering/Resolving]
  - Skin disorder [Unknown]
  - Weight decreased [Unknown]
  - Vomiting [Recovering/Resolving]
  - Fluid retention [Unknown]
  - Pollakiuria [Unknown]
  - Diarrhoea [Recovering/Resolving]
